FAERS Safety Report 9011874 (Version 2)
Quarter: 2013Q1

REPORT INFORMATION
  Report Type: Spontaneous
  Country: CZ (occurrence: None)
  Receive Date: 20121228
  Receipt Date: 20130326
  Transmission Date: 20140127
  Serious: Yes (Hospitalization)
  Sender: FDA-Public Use
  Company Number: 2012-653

PATIENT
  Age: 59 Year
  Sex: Female

DRUGS (3)
  1. PRIALT (ZICONOTIDE) INTRATHECAL INFUSION [Suspect]
     Indication: NEURALGIA
     Dosage: ONCE/HOUR
     Route: 048
     Dates: start: 200909, end: 200909
  2. PRIALT (ZICONOTIDE) INTRATHECAL INFUSION [Suspect]
     Indication: PAIN
     Dosage: ONCE/HOUR
     Route: 048
     Dates: start: 200909, end: 200909
  3. PRIALT (ZICONOTIDE) INTRATHECAL INFUSION [Suspect]
     Dosage: ONCE/HOUR
     Route: 048
     Dates: start: 200909, end: 200909

REACTIONS (7)
  - Tachypnoea [None]
  - Tracheobronchitis [None]
  - Confusional state [None]
  - Hallucination [None]
  - Dysarthria [None]
  - Cognitive disorder [None]
  - Pulmonary embolism [None]
